FAERS Safety Report 15314018 (Version 1)
Quarter: 2018Q3

REPORT INFORMATION
  Report Type: Spontaneous
  Country: US (occurrence: US)
  Receive Date: 20180824
  Receipt Date: 20180824
  Transmission Date: 20181010
  Serious: No
  Sender: FDA-Public Use
  Company Number: US-DRREDDYS-USA/USA/18/0095947

PATIENT
  Sex: Male

DRUGS (2)
  1. CLARINEX [Concomitant]
     Active Substance: DESLORATADINE
     Indication: PRODUCT USED FOR UNKNOWN INDICATION
     Route: 065
  2. DESLORATADINE ORALLY DISINTEGRATING TABLETS [Suspect]
     Active Substance: DESLORATADINE
     Indication: PRODUCT USED FOR UNKNOWN INDICATION
     Route: 048

REACTIONS (4)
  - Product quality issue [Unknown]
  - Reaction to excipient [Unknown]
  - Drug ineffective [Unknown]
  - Urticaria [Unknown]
